FAERS Safety Report 9513634 (Version 1)
Quarter: 2013Q3

REPORT INFORMATION
  Report Type: Spontaneous
  Country: FR (occurrence: FR)
  Receive Date: 20130910
  Receipt Date: 20130910
  Transmission Date: 20140515
  Serious: Yes (Other)
  Sender: FDA-Public Use
  Company Number: FR-GLAXOSMITHKLINE-B0920007B

PATIENT
  Sex: Female

DRUGS (7)
  1. LAMICTAL [Suspect]
     Indication: EPILEPSY
     Dosage: 200MG TWICE PER DAY
     Route: 048
  2. KEPPRA [Suspect]
     Indication: EPILEPSY
     Dosage: 500MG TWICE PER DAY
     Route: 048
  3. URBANYL [Suspect]
     Indication: EPILEPSY
     Dosage: 5MG PER DAY
     Route: 048
  4. TRANDATE [Suspect]
     Indication: HYPERTENSION
     Route: 048
     Dates: end: 20120306
  5. LEVOTHYROX [Suspect]
     Indication: HYPOTHYROIDISM
     Dosage: 87.5MCG PER DAY
     Route: 048
  6. AMLOR [Suspect]
     Indication: HYPERTENSION
     Dosage: 5MG PER DAY
     Route: 048
     Dates: end: 2011
  7. SPECIAFOLDINE [Suspect]
     Indication: PRODUCT USED FOR UNKNOWN INDICATION
     Dosage: 5MG PER DAY
     Route: 048
     Dates: start: 2011

REACTIONS (2)
  - Gestational diabetes [Unknown]
  - Exposure during pregnancy [Unknown]
